FAERS Safety Report 23682228 (Version 3)
Quarter: 2024Q2

REPORT INFORMATION
  Report Type: Spontaneous
  Country: SE (occurrence: SE)
  Receive Date: 20240328
  Receipt Date: 20240503
  Transmission Date: 20240716
  Serious: Yes (Other)
  Sender: FDA-Public Use
  Company Number: SE-AMERICAN REGENT INC-2024001115

PATIENT
  Age: 27 Year
  Sex: Female
  Weight: 88 kg

DRUGS (3)
  1. FERINJECT [Suspect]
     Active Substance: FERRIC CARBOXYMALTOSE
     Indication: Anaemia
     Dosage: 1000 MILLIGRAM X 1 SINGLE DOSE: FIRST DOSE (1000 MG,1 IN 1 TOTAL)
     Route: 042
     Dates: start: 20240311, end: 20240311
  2. CYANOCOBALAMIN [Concomitant]
     Active Substance: CYANOCOBALAMIN
     Indication: Product used for unknown indication
     Dosage: 2 TABLETS TWICE DAILY (2 MG, 2 IN 1 D)
     Route: 048
     Dates: start: 20240229
  3. FOLSYRA EVOLAN [Concomitant]
     Indication: Product used for unknown indication
     Dosage: 5 MILLIGRAM, 1 IN 1 D
     Route: 048
     Dates: start: 20240229

REACTIONS (8)
  - Cold sweat [Unknown]
  - Swelling [Recovered/Resolved]
  - Maternal exposure during pregnancy [Unknown]
  - Swelling face [Recovered/Resolved]
  - Dyspnoea [Recovered/Resolved]
  - Blood pressure decreased [Recovered/Resolved]
  - Abdominal discomfort [Unknown]
  - Chest discomfort [Unknown]

NARRATIVE: CASE EVENT DATE: 20240311
